FAERS Safety Report 19103528 (Version 1)
Quarter: 2021Q2

REPORT INFORMATION
  Report Type: Spontaneous
  Country: GB (occurrence: GB)
  Receive Date: 20210407
  Receipt Date: 20210407
  Transmission Date: 20210717
  Serious: Yes (Hospitalization, Other)
  Sender: FDA-Public Use
  Company Number: GB-AMGEN-GBRSP2021051252

PATIENT
  Age: 59 Year
  Sex: Male
  Weight: 75 kg

DRUGS (3)
  1. PROLIA [Suspect]
     Active Substance: DENOSUMAB
     Indication: OSTEOPOROSIS
     Dosage: UNK
     Route: 051
     Dates: start: 20201112
  2. ROSUVASTATIN. [Concomitant]
     Active Substance: ROSUVASTATIN
  3. MIRTAZAPIN [Concomitant]
     Active Substance: MIRTAZAPINE

REACTIONS (1)
  - Orbital myositis [Recovered/Resolved]

NARRATIVE: CASE EVENT DATE: 20201121
